FAERS Safety Report 13512098 (Version 2)
Quarter: 2017Q2

REPORT INFORMATION
  Report Type: Spontaneous
  Country: US (occurrence: US)
  Receive Date: 20170504
  Receipt Date: 20170509
  Transmission Date: 20170830
  Serious: No
  Sender: FDA-Public Use
  Company Number: US-ASTRAZENECA-2017SE46108

PATIENT
  Age: 24684 Day
  Sex: Female
  Weight: 88.5 kg

DRUGS (6)
  1. BYDUREON [Suspect]
     Active Substance: EXENATIDE
     Indication: TYPE 2 DIABETES MELLITUS
     Route: 058
     Dates: start: 20170426
  2. METFORMIN [Concomitant]
     Active Substance: METFORMIN HYDROCHLORIDE
     Indication: TYPE 2 DIABETES MELLITUS
     Route: 048
     Dates: start: 2000
  3. BYDUREON [Suspect]
     Active Substance: EXENATIDE
     Indication: TYPE 2 DIABETES MELLITUS
     Route: 058
     Dates: start: 20170419
  4. ONGLYZA [Suspect]
     Active Substance: SAXAGLIPTIN HYDROCHLORIDE
     Indication: TYPE 2 DIABETES MELLITUS
     Route: 048
     Dates: start: 2016, end: 2016
  5. ONGLYZA [Suspect]
     Active Substance: SAXAGLIPTIN HYDROCHLORIDE
     Indication: TYPE 2 DIABETES MELLITUS
     Route: 048
     Dates: end: 20170419
  6. GLIPIZIDE. [Concomitant]
     Active Substance: GLIPIZIDE
     Indication: BLOOD GLUCOSE INCREASED
     Route: 048

REACTIONS (14)
  - Nausea [Recovered/Resolved]
  - Blood glucose increased [Unknown]
  - Injection site mass [Unknown]
  - Malaise [Recovered/Resolved]
  - Drug ineffective [Unknown]
  - Affect lability [Recovered/Resolved]
  - Injection site pain [Recovering/Resolving]
  - Headache [Recovered/Resolved]
  - Injection site warmth [Recovering/Resolving]
  - Circumstance or information capable of leading to medication error [Not Recovered/Not Resolved]
  - Diarrhoea [Recovered/Resolved]
  - Tongue geographic [Not Recovered/Not Resolved]
  - Injection site pruritus [Recovering/Resolving]
  - Nervousness [Unknown]

NARRATIVE: CASE EVENT DATE: 20170419
